FAERS Safety Report 25044793 (Version 1)
Quarter: 2025Q1

REPORT INFORMATION
  Report Type: Spontaneous
  Country: US (occurrence: US)
  Receive Date: 20250306
  Receipt Date: 20250306
  Transmission Date: 20250408
  Serious: No
  Sender: ALVOGEN
  Company Number: US-ALVOGEN-2023092546

PATIENT
  Sex: Male

DRUGS (6)
  1. BUPRENORPHINE\NALOXONE [Suspect]
     Active Substance: BUPRENORPHINE\NALOXONE
     Indication: Drug dependence
     Dosage: STRENGTH: 08 MG/02 MG?EXPIRATION DATE: JAN-2025?TAKING ONE AND SOMETIMES ONE AND HALF A DAY
     Route: 060
  2. BUPRENORPHINE\NALOXONE [Suspect]
     Active Substance: BUPRENORPHINE\NALOXONE
     Indication: Drug dependence
     Dosage: STRENGTH: 08 MG/02 MG?TAKING ONE AND SOMETIMES ONE AND A HALF A DAY
     Route: 060
  3. BUPRENORPHINE\NALOXONE [Suspect]
     Active Substance: BUPRENORPHINE\NALOXONE
     Indication: Drug dependence
     Dosage: STRENGTH: 08 MG/02 MG?EXPIRATION DATE: AUG-2025?TAKING ONE AND SOMETIMES ONE AND A HALF A DAY
     Route: 060
  4. METHADONE [Concomitant]
     Active Substance: METHADONE HYDROCHLORIDE
     Indication: Product used for unknown indication
  5. EXCEDRIN [Concomitant]
     Active Substance: ACETAMINOPHEN\ASPIRIN\CAFFEINE
     Indication: Product used for unknown indication
  6. VITAMINS [Concomitant]
     Active Substance: VITAMINS
     Indication: Product used for unknown indication

REACTIONS (7)
  - Weight increased [Unknown]
  - Fatigue [Unknown]
  - Swelling face [Not Recovered/Not Resolved]
  - Somnolence [Unknown]
  - Drug ineffective [Unknown]
  - Wrong technique in product usage process [Unknown]
  - Product prescribing issue [Unknown]
